FAERS Safety Report 6134274-6 (Version None)
Quarter: 2009Q1

REPORT INFORMATION
  Report Type: 
  Country: None (occurrence: None)
  Receive Date: 20090325
  Receipt Date: 20090310
  Transmission Date: 20090719
  Serious: Yes (Hospitalization)
  Sender: FDA-Public Use
  Company Number: 2009S1004647

PATIENT
  Age: 70 Year
  Sex: Male
  Weight: 62 kg

DRUGS (7)
  1. FENTANYL-100 [Suspect]
     Indication: PANCREATIC CARCINOMA METASTATIC
     Dosage: 4.125 MG; 1_3 DAY; TRANSDERMAL
     Route: 062
  2. PANTOZOL [Concomitant]
  3. PANZYTRAT [Concomitant]
  4. SUCRALFATE [Concomitant]
  5. URSO FALK [Concomitant]
  6. METAMIZOLE [Concomitant]
  7. INSULIN [Concomitant]

REACTIONS (1)
  - FAECALOMA [None]
